FAERS Safety Report 26178634 (Version 1)
Quarter: 2025Q4

REPORT INFORMATION
  Report Type: Spontaneous
  Country: MY (occurrence: MY)
  Receive Date: 20251219
  Receipt Date: 20251219
  Transmission Date: 20260117
  Serious: Yes (Hospitalization, Other)
  Sender: DAIICHI
  Company Number: MY-AstraZeneca-CH-01012090A

PATIENT
  Age: 40 Year
  Sex: Female

DRUGS (1)
  1. TRASTUZUMAB DERUXTECAN [Suspect]
     Active Substance: TRASTUZUMAB DERUXTECAN
     Indication: Breast cancer metastatic
     Dosage: 300 MILLIGRAM
     Route: 042

REACTIONS (1)
  - Hepatic failure [Unknown]
